FAERS Safety Report 25101272 (Version 2)
Quarter: 2025Q2

REPORT INFORMATION
  Report Type: Report from Study
  Country: US (occurrence: US)
  Receive Date: 20250320
  Receipt Date: 20250411
  Transmission Date: 20250717
  Serious: Yes (Other)
  Sender: ABBVIE
  Company Number: US-ABBVIE-6179300

PATIENT
  Age: 72 Year
  Sex: Female
  Weight: 83.007 kg

DRUGS (4)
  1. RINVOQ [Suspect]
     Active Substance: UPADACITINIB
     Indication: Rheumatoid arthritis
     Dosage: FORM STRENGTH: 15 MILLIGRAM
     Route: 048
     Dates: start: 202405
  2. LIVALO [Concomitant]
     Active Substance: PITAVASTATIN CALCIUM
     Indication: Blood cholesterol increased
  3. DILANTIN [Concomitant]
     Active Substance: PHENYTOIN
     Indication: Seizure
  4. FOLIC ACID [Concomitant]
     Active Substance: FOLIC ACID
     Indication: Vitamin supplementation

REACTIONS (6)
  - Cataract [Recovered/Resolved with Sequelae]
  - Cataract operation complication [Not Recovered/Not Resolved]
  - Rash [Recovering/Resolving]
  - Acne [Recovering/Resolving]
  - Arthralgia [Recovering/Resolving]
  - Extraskeletal ossification [Unknown]

NARRATIVE: CASE EVENT DATE: 20240101
